FAERS Safety Report 14566630 (Version 1)
Quarter: 2018Q1

REPORT INFORMATION
  Report Type: Spontaneous
  Country: CA (occurrence: CA)
  Receive Date: 20180223
  Receipt Date: 20180223
  Transmission Date: 20180509
  Serious: Yes (Hospitalization)
  Sender: FDA-Public Use
  Company Number: CA-ASTRAZENECA-2018SE20988

PATIENT
  Sex: Male

DRUGS (1)
  1. FORXIGA [Suspect]
     Active Substance: DAPAGLIFLOZIN
     Dosage: 5.0MG UNKNOWN
     Route: 048

REACTIONS (5)
  - Depression [Unknown]
  - Occult blood [Unknown]
  - Ketoacidosis [Unknown]
  - Type 1 diabetes mellitus [Unknown]
  - Hypothyroidism [Unknown]
